FAERS Safety Report 6868938-3 (Version None)
Quarter: 2010Q3

REPORT INFORMATION
  Report Type: 
  Country: None (occurrence: None)
  Receive Date: 20100722
  Receipt Date: 20080816
  Transmission Date: 20110219
  Serious: No
  Sender: FDA-Public Use
  Company Number: US-PFIZER INC-2008051917

PATIENT
  Sex: Male
  Weight: 71.67 kg

DRUGS (2)
  1. CHANTIX [Suspect]
     Indication: SMOKING CESSATION THERAPY
     Dates: start: 20080608
  2. KLONOPIN [Concomitant]
     Indication: ANXIETY

REACTIONS (3)
  - ANXIETY [None]
  - DRUG DOSE OMISSION [None]
  - IRRITABILITY [None]
